FAERS Safety Report 5591072-X (Version None)
Quarter: 2008Q1

REPORT INFORMATION
  Report Type: 
  Country: None (occurrence: None)
  Receive Date: 20080111
  Receipt Date: 20080111
  Transmission Date: 20080703
  Serious: Yes (Hospitalization)
  Sender: FDA-Public Use
  Company Number: None

PATIENT
  Age: 55 Year
  Sex: Male

DRUGS (1)
  1. VORINOSTAT 400MG [Suspect]
     Indication: MYCOSIS FUNGOIDES
     Dosage: 400MG  DAILY  PO
     Route: 048
     Dates: start: 20070801, end: 20071101

REACTIONS (1)
  - DIABETIC KETOACIDOSIS [None]
